FAERS Safety Report 25916168 (Version 1)
Quarter: 2025Q4

REPORT INFORMATION
  Report Type: Spontaneous
  Country: EU (occurrence: EU)
  Receive Date: 20251014
  Receipt Date: 20251014
  Transmission Date: 20260117
  Serious: Yes (Other)
  Sender: ACCORD
  Company Number: None

PATIENT
  Age: 59 Year
  Sex: Male

DRUGS (11)
  1. CARBOPLATIN [Suspect]
     Active Substance: CARBOPLATIN
     Indication: Small cell lung cancer
     Dosage: FOUR CYCLES WERE PERFORMED ACCORDING TO THE CARBOPLATIN-ETOPOSIDE-DURVALUMAB REGIMEN
     Dates: start: 20250311, end: 20250513
  2. ETOPOSIDE [Suspect]
     Active Substance: ETOPOSIDE
     Indication: Small cell lung cancer
     Dosage: FOUR CYCLES WERE PERFORMED ACCORDING TO THE CARBOPLATIN-ETOPOSIDE-DURVALUMAB REGIMEN
     Dates: start: 20250311, end: 20250513
  3. DURVALUMAB [Concomitant]
     Active Substance: DURVALUMAB
  4. LASIX [Concomitant]
     Active Substance: FUROSEMIDE
  5. LORMETAZEPAM [Concomitant]
     Active Substance: LORMETAZEPAM
  6. INSULIN NOS [Concomitant]
     Active Substance: INSULIN NOS
  7. OXYGEN [Concomitant]
     Active Substance: OXYGEN
  8. ERYTHROPOIETIN [Concomitant]
     Active Substance: ERYTHROPOIETIN
  9. FOLIC ACID [Concomitant]
     Active Substance: FOLIC ACID
  10. FILGRASTIM [Concomitant]
     Active Substance: FILGRASTIM
  11. DIFLUCAN [Concomitant]
     Active Substance: FLUCONAZOLE

REACTIONS (1)
  - Acute myeloid leukaemia [Unknown]

NARRATIVE: CASE EVENT DATE: 20250807
